FAERS Safety Report 7607912-6 (Version None)
Quarter: 2011Q3

REPORT INFORMATION
  Report Type: 
  Country: None (occurrence: None)
  Receive Date: 20110714
  Receipt Date: 20090119
  Transmission Date: 20111222
  Serious: Yes (Death, Other)
  Sender: FDA-Public Use
  Company Number: US-BAYER-200911217NA

PATIENT
  Age: 83 Year
  Sex: Male
  Weight: 73 kg

DRUGS (10)
  1. TRASYLOL [Suspect]
     Indication: CORONARY ARTERY BYPASS
     Dosage: 100 ML BOLUS
     Dates: start: 20070202, end: 20070202
  2. VYTORIN [Concomitant]
     Dosage: UNK
     Route: 048
  3. COREG [Concomitant]
     Route: 048
  4. ALDACTONE [Concomitant]
     Route: 048
  5. COUMADIN [Concomitant]
     Route: 048
  6. DOBUTREX [Concomitant]
     Dosage: 500 MG/ 250 ML DSW
     Route: 042
  7. TRASYLOL [Suspect]
     Indication: MITRAL VALVE REPLACEMENT
     Dosage: 200 ML PUMP PRIME
     Route: 042
     Dates: start: 20070202, end: 20070202
  8. ACETYLSALICYLIC ACID SRT [Concomitant]
     Dosage: UNK
     Route: 048
  9. ATACAND [Concomitant]
     Route: 048
  10. LEVOPHED [Concomitant]
     Dosage: 4 MG/ 250 ML D%W
     Route: 042

REACTIONS (15)
  - STRESS [None]
  - UNEVALUABLE EVENT [None]
  - EMOTIONAL DISTRESS [None]
  - FEAR [None]
  - DEATH [None]
  - RENAL INJURY [None]
  - PAIN [None]
  - INJURY [None]
  - RENAL IMPAIRMENT [None]
  - ANXIETY [None]
  - ANHEDONIA [None]
  - RESPIRATORY FAILURE [None]
  - ABDOMINAL DISCOMFORT [None]
  - MULTI-ORGAN FAILURE [None]
  - RENAL FAILURE [None]
